FAERS Safety Report 8928601 (Version 1)
Quarter: 2012Q4

REPORT INFORMATION
  Report Type: Spontaneous
  Country: US (occurrence: None)
  Receive Date: 20121126
  Receipt Date: 20121126
  Transmission Date: 20130627
  Serious: No
  Sender: FDA-Public Use
  Company Number: None

PATIENT
  Age: 35 Year
  Sex: Female
  Weight: 63.5 kg

DRUGS (2)
  1. TERBUTALINE [Suspect]
     Indication: LABOR PREMATURE
     Dates: start: 19910618, end: 19910928
  2. MAGNESIUM SULFATE [Concomitant]

REACTIONS (2)
  - Palpitations [None]
  - Premature labour [None]
